FAERS Safety Report 6983947-1 (Version None)
Quarter: 2010Q3

REPORT INFORMATION
  Report Type: 
  Country: None (occurrence: None)
  Receive Date: 20100914
  Receipt Date: 20090429
  Transmission Date: 20110219
  Serious: No
  Sender: FDA-Public Use
  Company Number: US-WYE-H09170709

PATIENT
  Sex: Female
  Weight: 65.83 kg

DRUGS (3)
  1. ADVIL LIQUI-GELS [Suspect]
     Indication: TOOTHACHE
     Dosage: 2 TABLETS ONCE
     Route: 048
     Dates: start: 20090428, end: 20090429
  2. LEXAPRO [Concomitant]
  3. NORVASC [Concomitant]

REACTIONS (3)
  - ABNORMAL DREAMS [None]
  - HALLUCINATION [None]
  - POLLAKIURIA [None]
